FAERS Safety Report 7396366-3 (Version None)
Quarter: 2011Q2

REPORT INFORMATION
  Report Type: 
  Country: None (occurrence: None)
  Receive Date: 20110406
  Receipt Date: 20091122
  Transmission Date: 20111010
  Serious: Yes (Death, Hospitalization, Other)
  Sender: FDA-Public Use
  Company Number: US-BAYER-200939879NA

PATIENT
  Sex: Female
  Weight: 117.91 kg

DRUGS (14)
  1. CARDIZEM CD [Concomitant]
     Dosage: 180 MG, QD
     Route: 048
  2. HYDROCHLOROTHIAZIDE [Concomitant]
     Dosage: 12.5 MG, QD
     Route: 048
  3. GLYBURIDE [Concomitant]
     Dosage: 5 MG, QD
     Route: 048
  4. TRASYLOL [Suspect]
     Indication: AORTIC VALVE REPLACEMENT
     Dosage: UNK
     Route: 042
     Dates: start: 20070701
  5. AMICAR [Concomitant]
  6. PRAVACHOL [Concomitant]
     Dosage: 40 MG, QD
     Route: 048
  7. TRASYLOL [Suspect]
     Indication: CORONARY ARTERY BYPASS
  8. ACTOS [Concomitant]
     Dosage: 50 MG, QD
     Route: 048
  9. ALPRAZOLAM [Concomitant]
     Dosage: 0.5 MG, PRN
     Route: 048
  10. LEXAPRO [Concomitant]
     Dosage: 10 MG, QD
     Route: 048
  11. METOPROLOL [Concomitant]
     Dosage: 25 MG, BID
     Route: 048
  12. ACETYLSALICYLIC ACID SRT [Concomitant]
     Dosage: 81 MG, QD
     Route: 048
  13. BUPROPION HYDROCHLORIDE [Concomitant]
     Dosage: 150 MG, QD
     Route: 048
  14. LASIX [Concomitant]
     Dosage: 40 MG, BID
     Route: 048

REACTIONS (14)
  - RENAL FAILURE [None]
  - FEAR [None]
  - RENAL INJURY [None]
  - RENAL DISORDER [None]
  - INJURY [None]
  - ANXIETY [None]
  - UNEVALUABLE EVENT [None]
  - MULTI-ORGAN FAILURE [None]
  - EMOTIONAL DISTRESS [None]
  - STRESS [None]
  - RENAL IMPAIRMENT [None]
  - DEATH [None]
  - PAIN [None]
  - ANHEDONIA [None]
